FAERS Safety Report 8778104 (Version 1)
Quarter: 2012Q4

REPORT INFORMATION
  Report Type: 
  Country: JP (occurrence: JP)
  Receive Date: 20120912
  Receipt Date: 20120912
  Transmission Date: 20130627
  Serious: Yes (Other)
  Sender: FDA-Public Use
  Company Number: JP-ALLERGAN-1212545US

PATIENT
  Sex: Female

DRUGS (1)
  1. BOTOX [Suspect]
     Indication: BLEPHAROSPASM
     Dosage: UNK UNK, single
     Route: 030

REACTIONS (5)
  - Blepharospasm [Unknown]
  - Skin discolouration [Unknown]
  - Adenoviral conjunctivitis [Unknown]
  - Cataract [Unknown]
  - No therapeutic response [Unknown]
